FAERS Safety Report 7723301-8 (Version None)
Quarter: 2011Q3

REPORT INFORMATION
  Report Type: 
  Country: None (occurrence: None)
  Receive Date: 20110901
  Receipt Date: 20110901
  Transmission Date: 20111222
  Serious: Yes (Hospitalization)
  Sender: FDA-Public Use
  Company Number: None

PATIENT
  Age: 73 Year
  Sex: Male

DRUGS (14)
  1. GLIMEPIRIDE [Suspect]
     Indication: DIABETES MELLITUS
     Dosage: 1MG
     Route: 048
     Dates: start: 20110214, end: 20110228
  2. FUROSEMIDE [Concomitant]
  3. DILTIAZEM [Concomitant]
  4. PHOSLO [Concomitant]
  5. ASPIRIN [Concomitant]
     Route: 048
  6. FOSRENOL [Concomitant]
  7. NEPHROVITE [Concomitant]
  8. GLIMEPIRIDE [Concomitant]
     Dosage: 1MG
     Route: 048
  9. ISONIAZID [Concomitant]
  10. SIMAVASTATIN [Concomitant]
  11. COMBIVENT [Concomitant]
  12. HYDROCORTISONE [Concomitant]
  13. CARVEDILOL [Concomitant]
  14. PYRIDOXINE HCL [Concomitant]

REACTIONS (3)
  - DELIRIUM [None]
  - TREATMENT NONCOMPLIANCE [None]
  - HYPOGLYCAEMIA [None]
